FAERS Safety Report 9241233 (Version 3)
Quarter: 2013Q3

REPORT INFORMATION
  Report Type: Spontaneous
  Country: US (occurrence: US)
  Receive Date: 20130419
  Receipt Date: 20130919
  Transmission Date: 20140515
  Serious: Yes (Hospitalization)
  Sender: FDA-Public Use
  Company Number: US-BIOGENIDEC-2013BI033713

PATIENT
  Age: 48 Year
  Sex: Male

DRUGS (8)
  1. TYSABRI [Suspect]
     Indication: MULTIPLE SCLEROSIS
     Route: 042
     Dates: start: 20110603, end: 2012
  2. TYSABRI [Suspect]
     Indication: MULTIPLE SCLEROSIS
     Route: 042
     Dates: start: 2012, end: 2013
  3. TYSABRI [Suspect]
     Indication: MULTIPLE SCLEROSIS
     Route: 042
     Dates: start: 201306
  4. EFFEXOR [Concomitant]
  5. DICLOFENAC [Concomitant]
  6. OXYCONTIN [Concomitant]
     Indication: PAIN
  7. OXYCODONE [Concomitant]
     Indication: PAIN
  8. PAROXETINE HYROCHLORIDE [Concomitant]
     Indication: DEPRESSION

REACTIONS (13)
  - Bunion [Recovered/Resolved]
  - Pain in extremity [Recovered/Resolved]
  - Local swelling [Recovered/Resolved]
  - Skin discolouration [Recovered/Resolved]
  - Sepsis [Recovered/Resolved]
  - Gait disturbance [Recovered/Resolved]
  - Contusion [Recovered/Resolved]
  - Stress [Recovered/Resolved]
  - Coronary artery occlusion [Not Recovered/Not Resolved]
  - Procedural pain [Not Recovered/Not Resolved]
  - Amnesia [Not Recovered/Not Resolved]
  - Gastric disorder [Not Recovered/Not Resolved]
  - Culture positive [Not Recovered/Not Resolved]
